FAERS Safety Report 5697999-2 (Version None)
Quarter: 2008Q2

REPORT INFORMATION
  Report Type: 
  Country: None (occurrence: None)
  Receive Date: 20080408
  Receipt Date: 20080327
  Transmission Date: 20081010
  Serious: Yes (Hospitalization)
  Sender: FDA-Public Use
  Company Number: FR-ELI_LILLY_AND_COMPANY-FR200803006248

PATIENT
  Sex: Female

DRUGS (12)
  1. HUMULIN N [Suspect]
     Indication: DIABETES MELLITUS
     Dosage: UNK, UNK
     Route: 058
     Dates: start: 20080219, end: 20080221
  2. HUMULIN R [Suspect]
     Indication: DIABETES MELLITUS
     Dates: start: 20080215, end: 20080218
  3. ROCEPHIN [Concomitant]
     Indication: BRONCHITIS
     Dosage: 1 G, DAILY (1/D)
     Route: 030
     Dates: start: 20080213, end: 20080222
  4. ACTOS [Concomitant]
     Dates: end: 20080215
  5. GLUCOPHAGE [Concomitant]
     Dates: end: 20080215
  6. DAONIL [Concomitant]
  7. LASILIX [Concomitant]
  8. CRESTOR [Concomitant]
  9. KERLONE [Concomitant]
  10. COAPROVEL [Concomitant]
  11. KARDEGIC [Concomitant]
  12. TEMESTA [Concomitant]

REACTIONS (1)
  - URTICARIA [None]
